FAERS Safety Report 4393587-9 (Version None)
Quarter: 2004Q3

REPORT INFORMATION
  Report Type: 
  Country: None (occurrence: None)
  Receive Date: 20040709
  Receipt Date: 20040702
  Transmission Date: 20050211
  Serious: Yes (Hospitalization)
  Sender: FDA-Public Use
  Company Number: FR-ROCHE-372981

PATIENT
  Age: 49 Year
  Sex: Female

DRUGS (3)
  1. RIVOTRIL [Suspect]
     Indication: DRUG USE FOR UNKNOWN INDICATION
     Route: 048
     Dates: end: 20040427
  2. DI ANTALVIC [Suspect]
     Indication: PAIN
     Dosage: DRUG NAME REPORTED AS ^DI ANTALVIC ADULTE^.
     Route: 048
     Dates: end: 20040427
  3. LUTENYL [Suspect]
     Route: 048
     Dates: end: 20040427

REACTIONS (1)
  - HEPATITIS [None]
